FAERS Safety Report 6090857-3 (Version None)
Quarter: 2009Q1

REPORT INFORMATION
  Report Type: 
  Country: None (occurrence: None)
  Receive Date: 20090224
  Receipt Date: 20090210
  Transmission Date: 20090719
  Serious: No
  Sender: FDA-Public Use
  Company Number: US-ABBOTT-09P-163-0503156-00

PATIENT
  Sex: Female
  Weight: 70.824 kg

DRUGS (5)
  1. SIMCOR [Suspect]
     Indication: HIGH DENSITY LIPOPROTEIN DECREASED
     Dosage: 500/20MG X 2 TABS
     Route: 048
     Dates: start: 20090202
  2. SIMCOR [Suspect]
     Indication: LOW DENSITY LIPOPROTEIN INCREASED
  3. TOPROL-XL [Concomitant]
     Indication: HYPERTENSION
     Route: 048
  4. DILTIAZEM [Concomitant]
     Indication: BLOOD PRESSURE
     Route: 048
  5. DILTIAZEM [Concomitant]
     Indication: ANGINA PECTORIS

REACTIONS (7)
  - ARTHRALGIA [None]
  - BACK PAIN [None]
  - BLISTER [None]
  - INSOMNIA [None]
  - OEDEMA PERIPHERAL [None]
  - PRURITUS [None]
  - RESPIRATORY RATE INCREASED [None]
